FAERS Safety Report 18754855 (Version 4)
Quarter: 2021Q2

REPORT INFORMATION
  Report Type: Spontaneous
  Country: US (occurrence: US)
  Receive Date: 20210119
  Receipt Date: 20210419
  Transmission Date: 20210717
  Serious: Yes (Other)
  Sender: FDA-Public Use
  Company Number: US-CELGENEUS-USA-20210103231

PATIENT
  Age: 50 Year
  Sex: Male
  Weight: 90.8 kg

DRUGS (2)
  1. REVLIMID [Suspect]
     Active Substance: LENALIDOMIDE
     Dosage: 10 MILLIGRAM
     Route: 048
     Dates: start: 20201021
  2. REVLIMID [Suspect]
     Active Substance: LENALIDOMIDE
     Indication: PLASMA CELL MYELOMA
     Dosage: 25 MILLIGRAM
     Route: 048
     Dates: start: 20190513

REACTIONS (16)
  - Pancreatitis chronic [Unknown]
  - Neuropathy peripheral [Unknown]
  - Dysuria [Unknown]
  - Blood testosterone decreased [Unknown]
  - Gastrooesophageal reflux disease [Unknown]
  - Rash macular [Unknown]
  - Fatigue [Unknown]
  - Dyspepsia [Unknown]
  - Bladder disorder [Unknown]
  - Gastric disorder [Unknown]
  - Pruritus [Unknown]
  - Constipation [Unknown]
  - Herpes zoster [Unknown]
  - Pain [Unknown]
  - Arthralgia [Unknown]
  - Decreased appetite [Unknown]

NARRATIVE: CASE EVENT DATE: 202012
